FAERS Safety Report 16986492 (Version 4)
Quarter: 2020Q2

REPORT INFORMATION
  Report Type: Report from Study
  Country: US (occurrence: US)
  Receive Date: 20191101
  Receipt Date: 20200529
  Transmission Date: 20200713
  Serious: Yes (Hospitalization, Other)
  Sender: FDA-Public Use
  Company Number: US-ACTELION-A-NJ2018-179186

PATIENT
  Age: 55 Year
  Sex: Female
  Weight: 40.82 kg

DRUGS (59)
  1. PREDNISONE. [Concomitant]
     Active Substance: PREDNISONE
  2. ZOFRAN [Concomitant]
     Active Substance: ONDANSETRON HYDROCHLORIDE
     Indication: NAUSEA
     Dosage: 4 MG, QD
     Dates: start: 2012
  3. KLOR-CON [Concomitant]
     Active Substance: POTASSIUM CHLORIDE
     Dosage: 40 MEQ, QD
     Route: 048
  4. COREG [Concomitant]
     Active Substance: CARVEDILOL
  5. BACLOFEN. [Concomitant]
     Active Substance: BACLOFEN
     Dosage: 5 MG, TWICE A WK, AS NEEDED
  6. HYDROCORTISONE. [Concomitant]
     Active Substance: HYDROCORTISONE
     Dosage: 2.5 %, TWICE DAILY FOR 2 WEEKS, FOLLOWED BY WEEKENDS ONLY FOR 2 WEEKS. REPEAT AS NEEDED
     Route: 061
  7. NIZORAL [Concomitant]
     Active Substance: KETOCONAZOLE
     Indication: PRURITUS
     Dosage: 2 %, SHAMPOO ONCE DAILY AS NEEDED
     Route: 061
  8. PROMETHAZINE [Concomitant]
     Active Substance: PROMETHAZINE HYDROCHLORIDE
     Indication: NAUSEA
     Dosage: 12.5 MG, PRN TID
     Route: 054
  9. ACYCLOVIR. [Concomitant]
     Active Substance: ACYCLOVIR
     Dosage: 5 % AS NEEDED, TID
  10. MULTIVITAMIN [Concomitant]
     Active Substance: VITAMINS
     Dosage: 10 ML
  11. MYCOPHENOLATE SODIUM [Concomitant]
     Active Substance: MYCOPHENOLATE SODIUM
     Dosage: 360 MG, BID
  12. REVATIO [Concomitant]
     Active Substance: SILDENAFIL CITRATE
     Dosage: 20 MG, TID
     Dates: start: 20160611
  13. ELIQUIS [Concomitant]
     Active Substance: APIXABAN
     Indication: ANTICOAGULATION DRUG LEVEL ABNORMAL
     Dosage: 2.5 MG, Q12HRS
     Route: 048
     Dates: start: 2013
  14. MAGNESIUM OXIDE. [Concomitant]
     Active Substance: MAGNESIUM OXIDE
     Dosage: 400 MG, QD
     Route: 048
  15. LISINOPRIL. [Concomitant]
     Active Substance: LISINOPRIL
     Dosage: 20 MG, QD
  16. SODIUM CHLORIDE. [Concomitant]
     Active Substance: SODIUM CHLORIDE
     Dosage: 5 UNK
  17. UPTRAVI [Suspect]
     Active Substance: SELEXIPAG
     Indication: PULMONARY HYPERTENSION
     Dosage: UNK
     Route: 048
     Dates: start: 20180720
  18. MARINOL [Concomitant]
     Active Substance: DRONABINOL
     Indication: NAUSEA
     Dosage: 2.5 MG, TID
     Route: 048
     Dates: start: 2017
  19. MYFORTIC [Concomitant]
     Active Substance: MYCOPHENOLATE SODIUM
     Indication: SYSTEMIC LUPUS ERYTHEMATOSUS
     Dosage: 360 MG, BID
     Route: 048
     Dates: start: 2015
  20. BENZONATATE. [Concomitant]
     Active Substance: BENZONATATE
     Indication: COUGH
     Dosage: 100 MG, TID  PRN
     Route: 048
  21. CALCIUM CARBONATE. [Concomitant]
     Active Substance: CALCIUM CARBONATE
     Dosage: 1200 IU
     Route: 048
  22. CITRACAL + D [Concomitant]
     Active Substance: CALCIUM CITRATE\VITAMIN D
     Dosage: 900-1000 MG DAILY
     Route: 048
  23. COMPAZINE [Concomitant]
     Active Substance: PROCHLORPERAZINE MALEATE
     Indication: VOMITING
  24. SIMETHICONE (DIMETHICONE) [Concomitant]
     Active Substance: DIMETHICONE
  25. OXYGEN. [Concomitant]
     Active Substance: OXYGEN
     Dosage: 2. L
  26. PROCARDIA [Concomitant]
     Active Substance: NIFEDIPINE
     Dosage: 30 MG, QD
     Route: 048
  27. HEPARIN [Concomitant]
     Active Substance: HEPARIN SODIUM
     Dosage: 5 ML
     Route: 042
  28. SODIUM CHLORIDE. [Concomitant]
     Active Substance: SODIUM CHLORIDE
     Dosage: 10 ML
  29. CAMPHOR W/MENTHOL [Concomitant]
     Active Substance: CAMPHOR (SYNTHETIC)\MENTHOL
     Dosage: UNK, BID
     Route: 061
  30. UPTRAVI [Suspect]
     Active Substance: SELEXIPAG
     Dosage: 1000 MCG, BID
     Route: 048
     Dates: start: 20181002
  31. ASPIRIN. [Concomitant]
     Active Substance: ASPIRIN
     Indication: ANTICOAGULATION DRUG LEVEL ABNORMAL
     Dosage: 81 MG, QD
     Route: 048
     Dates: start: 2013
  32. ZOFRAN [Concomitant]
     Active Substance: ONDANSETRON HYDROCHLORIDE
     Dosage: 4 MG, PRN; EVERY 8 HOURS AS NEEDED
     Route: 048
     Dates: start: 2012
  33. COMPAZINE [Concomitant]
     Active Substance: PROCHLORPERAZINE MALEATE
     Indication: NAUSEA
     Dosage: 10 MG, PRN, TID
     Route: 048
  34. XYZAL [Concomitant]
     Active Substance: LEVOCETIRIZINE DIHYDROCHLORIDE
     Dosage: 5 MG, QD
     Route: 048
  35. LISINOPRIL. [Concomitant]
     Active Substance: LISINOPRIL
     Dosage: 5 MG, QD
  36. PLAQUENIL [Concomitant]
     Active Substance: HYDROXYCHLOROQUINE SULFATE
     Indication: SYSTEMIC LUPUS ERYTHEMATOSUS
     Dosage: 200 MG, QD
     Route: 048
     Dates: start: 2012
  37. PRILOSEC [Concomitant]
     Active Substance: OMEPRAZOLE MAGNESIUM
     Indication: OESOPHAGEAL DISORDER
     Dosage: 20 MG, QD
     Dates: start: 2012
  38. PRILOSEC [Concomitant]
     Active Substance: OMEPRAZOLE MAGNESIUM
     Dosage: 40 MG, QD
     Dates: start: 2012
  39. FOLATE [Concomitant]
     Active Substance: FOLATE SODIUM
     Dosage: 1 MG, QD
     Route: 048
  40. RIBOFLAVIN [Concomitant]
     Active Substance: RIBOFLAVIN
     Dosage: 400 MG, QD
     Route: 048
  41. FAMOTIDINE. [Concomitant]
     Active Substance: FAMOTIDINE
     Dosage: 40 MG
  42. CALCIUM CITRATE WITH VITAMIN D3 [Concomitant]
     Active Substance: CALCIUM CITRATE\CHOLECALCIFEROL
     Dosage: 600 MG, BID
  43. CETIRIZINE [Concomitant]
     Active Substance: CETIRIZINE HYDROCHLORIDE
     Dosage: 10 MG, PRN
  44. DEXTROMETHORPHAN HBR + GUAIFENESIN [Concomitant]
     Active Substance: DEXTROMETHORPHAN HYDROBROMIDE\GUAIFENESIN
     Dosage: 5 ML, PRN
  45. HYDROCORTISONE. [Concomitant]
     Active Substance: HYDROCORTISONE
     Indication: VULVAL DISORDER
     Dosage: 2.5 %, BID TO AFFECTED AREA
     Route: 061
     Dates: start: 2017
  46. FERROUS GLUCONATE [Concomitant]
     Active Substance: FERROUS GLUCONATE
     Dosage: 324 MG, BID
     Route: 048
  47. DELTASONE [Concomitant]
     Active Substance: PREDNISONE
     Dosage: 5 MG, EVERY OTHER DAY
  48. ARISTOCORT [Concomitant]
     Active Substance: TRIAMCINOLONE DIACETATE
     Dosage: 0.1 %, APPLY TO AFFECTED AREAS TWICE DAILY FOR 2 WEEKS, FOLLOWED BY WEEKEND ONLY FOR 2 WEEKS.  REPEA
  49. OXYGEN. [Concomitant]
     Active Substance: OXYGEN
     Dosage: 2.5 UNK
  50. SUCRALFATE. [Concomitant]
     Active Substance: SUCRALFATE
     Dosage: 100 MG/ML, QID
     Route: 048
  51. VITAMIN B2 [Concomitant]
     Active Substance: RIBOFLAVIN
     Dosage: 400 MG, QD
  52. ZOVIRAX [Concomitant]
     Active Substance: ACYCLOVIR
     Indication: VULVAL DISORDER
     Dosage: 5 %, TID
     Route: 061
     Dates: start: 2017
  53. VITAMIN C [Concomitant]
     Active Substance: ASCORBIC ACID
     Dosage: 500 MG, BID
     Route: 048
  54. ATARAX [Concomitant]
     Active Substance: HYDROXYZINE HYDROCHLORIDE
     Indication: PRURITUS
     Dosage: 10 MG, PRN
     Route: 048
  55. DRONABINOL. [Concomitant]
     Active Substance: DRONABINOL
     Dosage: 2.5 MG, TID
  56. PNV PLUS [Concomitant]
     Dosage: 27 MG, QD
     Route: 048
  57. FOLIC ACID. [Concomitant]
     Active Substance: FOLIC ACID
     Dosage: 1 MG, QD
  58. ALBUTEROL. [Concomitant]
     Active Substance: ALBUTEROL
  59. PHENOL. [Concomitant]
     Active Substance: PHENOL
     Dosage: 2 DF, PRN
     Route: 048

REACTIONS (68)
  - Chills [Recovered/Resolved with Sequelae]
  - Upper respiratory tract infection [Recovered/Resolved with Sequelae]
  - Productive cough [Recovered/Resolved with Sequelae]
  - Fluid overload [Unknown]
  - Transfusion [Unknown]
  - Decreased appetite [Unknown]
  - Oxygen saturation decreased [Recovered/Resolved with Sequelae]
  - Anal incontinence [Recovered/Resolved with Sequelae]
  - Retroperitoneal mass [Not Recovered/Not Resolved]
  - Alanine aminotransferase increased [Not Recovered/Not Resolved]
  - Dyspnoea [Recovered/Resolved with Sequelae]
  - Chest pain [Recovered/Resolved with Sequelae]
  - Hypoaesthesia [Recovered/Resolved with Sequelae]
  - Dizziness [Recovered/Resolved with Sequelae]
  - Disease progression [Unknown]
  - Diarrhoea [Recovered/Resolved with Sequelae]
  - Cough [Recovered/Resolved with Sequelae]
  - Abdominal pain [Recovered/Resolved with Sequelae]
  - Sputum discoloured [Recovered/Resolved with Sequelae]
  - Tachycardia [Recovered/Resolved with Sequelae]
  - Sinus tachycardia [Unknown]
  - Abdominal discomfort [Unknown]
  - Acute myocardial infarction [Recovered/Resolved with Sequelae]
  - Viral infection [Recovered/Resolved with Sequelae]
  - Ischaemic hepatitis [Not Recovered/Not Resolved]
  - Hyperhidrosis [Recovered/Resolved with Sequelae]
  - Pyrexia [Recovered/Resolved with Sequelae]
  - Heart rate increased [Unknown]
  - Oedema [Unknown]
  - Pulmonary hypertension [Unknown]
  - Eosinophil percentage increased [Unknown]
  - Liver function test increased [Not Recovered/Not Resolved]
  - Nausea [Recovered/Resolved with Sequelae]
  - Headache [Recovered/Resolved with Sequelae]
  - Parenteral nutrition [Unknown]
  - Vomiting [Recovered/Resolved with Sequelae]
  - Fatigue [Unknown]
  - Palpitations [Unknown]
  - Hypophagia [Unknown]
  - Oesophageal stenosis [Unknown]
  - Dysphonia [Unknown]
  - Hypoxia [Recovered/Resolved with Sequelae]
  - Haematocrit decreased [Unknown]
  - Condition aggravated [Unknown]
  - Constipation [Unknown]
  - Dysphagia [Unknown]
  - Orthostatic hypotension [Unknown]
  - Haematemesis [Recovered/Resolved with Sequelae]
  - Blood magnesium decreased [Unknown]
  - Malaise [Recovered/Resolved with Sequelae]
  - Pulmonary oedema [Unknown]
  - Gastrointestinal disorder [Recovered/Resolved with Sequelae]
  - Chest discomfort [Recovered/Resolved with Sequelae]
  - Abdominal pain upper [Recovered/Resolved with Sequelae]
  - Aspartate aminotransferase increased [Not Recovered/Not Resolved]
  - Pancreatic mass [Not Recovered/Not Resolved]
  - Supraventricular tachycardia [Recovered/Resolved]
  - Red blood cell count decreased [Unknown]
  - Device dislocation [Recovered/Resolved with Sequelae]
  - Hypovolaemia [Unknown]
  - Tricuspid valve incompetence [Unknown]
  - Hypertension [Recovered/Resolved with Sequelae]
  - Syncope [Recovered/Resolved]
  - Dyspnoea exertional [Recovered/Resolved with Sequelae]
  - Brain natriuretic peptide increased [Unknown]
  - Haemoglobin decreased [Unknown]
  - Oesophageal dilation procedure [Unknown]
  - Blood pressure increased [Recovered/Resolved with Sequelae]

NARRATIVE: CASE EVENT DATE: 2018
